FAERS Safety Report 17932551 (Version 1)
Quarter: 2020Q2

REPORT INFORMATION
  Report Type: Spontaneous
  Country: US (occurrence: US)
  Receive Date: 20200624
  Receipt Date: 20200624
  Transmission Date: 20200714
  Serious: Yes (Other)
  Sender: FDA-Public Use
  Company Number: US-AMGEN-USASP2020098137

PATIENT
  Sex: Female

DRUGS (1)
  1. PROLIA [Suspect]
     Active Substance: DENOSUMAB
     Indication: OSTEOPOROSIS POSTMENOPAUSAL
     Dosage: UNK UNK, Q6MO
     Route: 065

REACTIONS (7)
  - Tooth fracture [Unknown]
  - Arthralgia [Unknown]
  - Skin lesion [Unknown]
  - Dysphonia [Unknown]
  - Pain in jaw [Unknown]
  - Tooth loss [Unknown]
  - Tooth infection [Unknown]
